FAERS Safety Report 8903471 (Version 3)
Quarter: 2013Q1

REPORT INFORMATION
  Report Type: Spontaneous
  Country: US (occurrence: US)
  Receive Date: 20121112
  Receipt Date: 20130128
  Transmission Date: 20140127
  Serious: Yes (Hospitalization)
  Sender: FDA-Public Use
  Company Number: US-ACTELION-A-NJ2012-65202

PATIENT
  Age: 67 Year
  Sex: Female

DRUGS (7)
  1. VELETRI [Suspect]
     Indication: PULMONARY ARTERIAL HYPERTENSION
     Dosage: 33 NG/KG, PER MIN
     Route: 041
     Dates: start: 20120202
  2. VELETRI [Suspect]
     Dosage: UNK
     Route: 041
  3. SILDENAFIL [Concomitant]
  4. LETAIRIS [Concomitant]
  5. COUMADIN [Concomitant]
  6. SIMVASTATIN [Concomitant]
  7. THYROID [Concomitant]

REACTIONS (5)
  - Transfusion [Unknown]
  - Incorrect dose administered [Unknown]
  - Fluid retention [Unknown]
  - Oedema [Unknown]
  - Diarrhoea [Recovered/Resolved]
